FAERS Safety Report 10112200 (Version 3)
Quarter: 2014Q2

REPORT INFORMATION
  Report Type: Spontaneous
  Country: US (occurrence: US)
  Receive Date: 20140425
  Receipt Date: 20140630
  Transmission Date: 20141212
  Serious: Yes (Other)
  Sender: FDA-Public Use
  Company Number: PHEH2014US008051

PATIENT
  Sex: Female
  Weight: 79.9 kg

DRUGS (2)
  1. AREDIA [Suspect]
     Route: 042
  2. ZOMETA [Suspect]
     Indication: BREAST CANCER METASTATIC
     Dosage: 4 MG
     Route: 042
     Dates: end: 200604

REACTIONS (17)
  - Breast hyperplasia [Unknown]
  - Sexual dysfunction [Unknown]
  - Vulvovaginal dryness [Unknown]
  - Breast mass [Unknown]
  - Fibrocystic breast disease [Unknown]
  - Soft tissue disorder [Unknown]
  - Cyst [Unknown]
  - Myofascial pain syndrome [Unknown]
  - Nervous system disorder [Unknown]
  - Metastases to bone [Unknown]
  - Polyneuropathy [Unknown]
  - Skin hyperpigmentation [Unknown]
  - Musculoskeletal discomfort [Unknown]
  - Scar [Unknown]
  - Asthenia [Unknown]
  - Erythema [Unknown]
  - Facial pain [Unknown]
